FAERS Safety Report 21478642 (Version 4)
Quarter: 2025Q1

REPORT INFORMATION
  Report Type: Spontaneous
  Country: US (occurrence: US)
  Receive Date: 20221019
  Receipt Date: 20250116
  Transmission Date: 20250408
  Serious: No
  Sender: SANOFI AVENTIS
  Company Number: US-SA-SAC00000000009537

PATIENT
  Sex: Female
  Weight: 81.64 kg

DRUGS (2)
  1. FABRAZYME [Suspect]
     Active Substance: AGALSIDASE BETA
     Indication: Fabry^s disease
     Dosage: 115 MG, QOW
     Route: 042
     Dates: start: 20140129
  2. FABRAZYME [Suspect]
     Active Substance: AGALSIDASE BETA
     Dosage: 160 MG (80 MG AND 80 MG), QOW
     Route: 042
     Dates: start: 201801

REACTIONS (2)
  - Weight increased [Unknown]
  - Weight increased [Unknown]

NARRATIVE: CASE EVENT DATE: 20240501
